FAERS Safety Report 23886674 (Version 1)
Quarter: 2024Q2

REPORT INFORMATION
  Report Type: Spontaneous
  Country: CA (occurrence: None)
  Receive Date: 20240522
  Receipt Date: 20240522
  Transmission Date: 20240716
  Serious: Yes (Other)
  Sender: FDA-Public Use
  Company Number: CA-ROCHE-3566445

PATIENT
  Age: 64 Year
  Sex: Male

DRUGS (4)
  1. SOMATROPIN [Suspect]
     Active Substance: SOMATROPIN
     Indication: Growth hormone deficiency
     Route: 058
  2. CORTEF [Concomitant]
     Active Substance: HYDROCORTISONE
  3. SYNTHROID [Concomitant]
     Active Substance: LEVOTHYROXINE SODIUM
  4. TESTOSTERONE [Concomitant]
     Active Substance: TESTOSTERONE

REACTIONS (2)
  - Brain neoplasm [Not Recovered/Not Resolved]
  - Neoplasm progression [Not Recovered/Not Resolved]
